FAERS Safety Report 8405770-3 (Version None)
Quarter: 2012Q2

REPORT INFORMATION
  Report Type: 
  Country: None (occurrence: None)
  Receive Date: 20120323
  Receipt Date: 20110427
  Transmission Date: 20120825
  Serious: Yes (Death, Hospitalization)
  Sender: FDA-Public Use
  Company Number: 163-21880-10090901

PATIENT
  Age: 85 Year
  Sex: Female

DRUGS (14)
  1. REVLIMID [Suspect]
     Indication: MULTIPLE MYELOMA
     Dosage: 25 MG, DAILY FOR 21 DAYS, PO
     Route: 048
     Dates: start: 20100602, end: 20100811
  2. CIPRO [Concomitant]
  3. NEXIUM [Concomitant]
  4. MCROBID (NITROFURANTOIN) [Concomitant]
  5. NARCAN [Concomitant]
  6. LABETALOL HCL [Concomitant]
  7. PROCRIT [Suspect]
     Indication: PRODUCT USED FOR UNKNOWN INDICATION
  8. NEUPOGEN [Suspect]
     Indication: PRODUCT USED FOR UNKNOWN INDICATION
     Dosage: 480 UG
  9. GABAPENTIN [Concomitant]
  10. DURAGESIC-100 [Concomitant]
  11. ZOSYN [Concomitant]
  12. REVLIMID [Suspect]
  13. NOVOLIN R [Concomitant]
  14. ARANESP [Suspect]
     Indication: PRODUCT USED FOR UNKNOWN INDICATION
     Dosage: 300 UG, SC
     Route: 058

REACTIONS (9)
  - URINARY TRACT INFECTION [None]
  - BACK PAIN [None]
  - ANAEMIA [None]
  - PLATELET COUNT DECREASED [None]
  - MALAISE [None]
  - EMBOLIC STROKE [None]
  - ASTHENIA [None]
  - ATRIAL FIBRILLATION [None]
  - HYPOTENSION [None]
